FAERS Safety Report 8606419-7 (Version None)
Quarter: 2012Q3

REPORT INFORMATION
  Report Type: 
  Country: None (occurrence: None)
  Receive Date: 20120820
  Receipt Date: 20120625
  Transmission Date: 20120928
  Serious: Yes (Other)
  Sender: FDA-Public Use
  Company Number: PT-ROCHE-699980

PATIENT
  Sex: Female
  Weight: 59 kg

DRUGS (14)
  1. ALBUTEROL SULATE [Concomitant]
     Indication: BRONCHOSPASM
     Dates: start: 20100201, end: 20100203
  2. OXALIPLATIN [Suspect]
  3. FLUOROURACIL [Suspect]
     Dosage: OVER 46-48 HOURS.
     Route: 042
  4. LEUCOVORIN CALCIUM [Concomitant]
     Route: 042
  5. AVASTIN [Suspect]
     Indication: COLORECTAL CANCER
     Dosage: OVER 30-90 MINUTES
     Route: 042
     Dates: start: 20100125, end: 20100308
  6. AVASTIN [Suspect]
     Route: 042
  7. OXALIPLATIN [Suspect]
     Indication: COLORECTAL CANCER
     Dosage: ON DAY 01 OF EVERY 14 DAYS CYCLE.
     Route: 042
     Dates: start: 20100125, end: 20100308
  8. DRILL [Concomitant]
     Indication: NASOPHARYNGITIS
     Dosage: FORM: PILL
     Dates: start: 20100131, end: 20100131
  9. ALLOPURINOL [Concomitant]
     Indication: HYPERURICAEMIA
  10. ACETAMINOPHEN [Concomitant]
     Indication: NASOPHARYNGITIS
     Dates: start: 20100131, end: 20100131
  11. ALTIZIDE + SPIRONOLACTONE [Concomitant]
     Indication: HYPERTENSION
     Dosage: DOSE REPORTED AS: 15MG+25 MG
     Dates: start: 20100201, end: 20100201
  12. FLUOROURACIL [Suspect]
     Indication: COLORECTAL CANCER
     Dosage: ON EVERY DAY 01. FOLLOWED BY 2400 MG/M2
     Route: 042
     Dates: start: 20100125, end: 20100308
  13. LEUCOVORIN CALCIUM [Concomitant]
     Indication: COLORECTAL CANCER
     Route: 042
     Dates: start: 20100125, end: 20100308
  14. LOPERAMIDE HCL [Concomitant]
     Indication: DIARRHOEA

REACTIONS (3)
  - DIARRHOEA [None]
  - DEHYDRATION [None]
  - BLOOD CREATININE INCREASED [None]
